FAERS Safety Report 23315254 (Version 1)
Quarter: 2023Q4

REPORT INFORMATION
  Report Type: Spontaneous
  Country: JP (occurrence: JP)
  Receive Date: 20231219
  Receipt Date: 20231219
  Transmission Date: 20240109
  Serious: Yes (Hospitalization, Other)
  Sender: FDA-Public Use
  Company Number: JP-ONO-2023JP030956

PATIENT
  Age: 10 Decade
  Sex: Female

DRUGS (1)
  1. OPDIVO [Suspect]
     Active Substance: NIVOLUMAB
     Indication: Gastric cancer
     Dosage: OPDIVO HAD BEEN ADMINISTERED 25 TIMES IN TOTAL
     Route: 041

REACTIONS (2)
  - Cholangitis infective [Recovering/Resolving]
  - Adrenocorticotropic hormone deficiency [Unknown]
